FAERS Safety Report 25721375 (Version 1)
Quarter: 2025Q3

REPORT INFORMATION
  Report Type: Spontaneous
  Country: EU (occurrence: EU)
  Receive Date: 20250825
  Receipt Date: 20250825
  Transmission Date: 20251020
  Serious: Yes (Death)
  Sender: CHEPLAPHARM
  Company Number: None

PATIENT
  Age: 78 Year
  Sex: Male
  Weight: 69 kg

DRUGS (6)
  1. QUETIAPINE [Suspect]
     Active Substance: QUETIAPINE
     Indication: Mixed anxiety and depressive disorder
     Dosage: DAILY DOSE: 1 DOSAGE FORM
     Route: 048
     Dates: start: 20241213, end: 20241228
  2. KARDEGIC [Concomitant]
     Active Substance: ASPIRIN DL-LYSINE
     Dosage: 0-1-0-0 PO?DAILY DOSE: 75 MILLIGRAM
     Route: 048
  3. LOXAPINE [Concomitant]
     Active Substance: LOXAPINE
     Dosage: 0-0-0-1 PO?DAILY DOSE: 5 MILLIGRAM
     Route: 048
  4. FEBUXOSTAT [Concomitant]
     Active Substance: FEBUXOSTAT
     Dosage: 1-0-0-0 PO?DAILY DOSE: 80 MILLIGRAM
     Route: 048
  5. SIMVASTATIN [Concomitant]
     Active Substance: SIMVASTATIN
     Dosage: 0-0-1-0 PO?DAILY DOSE: 10 MILLIGRAM
     Route: 048
  6. BISOPROLOL [Concomitant]
     Active Substance: BISOPROLOL
     Dosage: 1-0-0-0 PO?DAILY DOSE: 2.5 MILLIGRAM
     Route: 048

REACTIONS (4)
  - Ischaemic hepatitis [Fatal]
  - Hepatic encephalopathy [Fatal]
  - Dilated cardiomyopathy [Fatal]
  - Acute hepatic failure [Fatal]

NARRATIVE: CASE EVENT DATE: 20241224
